FAERS Safety Report 5764906-3 (Version None)
Quarter: 2008Q2

REPORT INFORMATION
  Report Type: 
  Country: None (occurrence: None)
  Receive Date: 20080611
  Receipt Date: 20080602
  Transmission Date: 20081010
  Serious: Yes (Other)
  Sender: FDA-Public Use
  Company Number: A0622308A

PATIENT
  Age: 6 Year
  Sex: Female

DRUGS (6)
  1. LAMICTAL [Suspect]
     Dosage: 2MG THREE TIMES PER DAY
     Route: 048
     Dates: start: 20060915
  2. TRILEPTAL [Suspect]
     Route: 048
     Dates: start: 20080301, end: 20080501
  3. MIRALAX [Concomitant]
  4. KLONOPIN [Concomitant]
  5. DIASTAT [Concomitant]
  6. CLONIDINE [Concomitant]

REACTIONS (6)
  - CONVULSION [None]
  - DENTAL CARIES [None]
  - ELEVATED MOOD [None]
  - EXPIRED DRUG ADMINISTERED [None]
  - MASTICATION DISORDER [None]
  - SOMNOLENCE [None]
